FAERS Safety Report 18637722 (Version 1)
Quarter: 2020Q4

REPORT INFORMATION
  Report Type: Spontaneous
  Country: FR (occurrence: FR)
  Receive Date: 20201218
  Receipt Date: 20201218
  Transmission Date: 20210114
  Serious: Yes (Death)
  Sender: FDA-Public Use
  Company Number: FR-MYLANLABS-2020M1102895

PATIENT
  Age: 78 Year
  Sex: Male
  Weight: 80.4 kg

DRUGS (2)
  1. DEXAMETHASONE. [Suspect]
     Active Substance: DEXAMETHASONE
     Indication: CORONAVIRUS INFECTION
     Dosage: 6 MILLIGRAM, QD
     Route: 048
     Dates: start: 20201028, end: 20201031
  2. DEXAMETHASONE. [Suspect]
     Active Substance: DEXAMETHASONE
     Indication: CORONAVIRUS INFECTION
     Dosage: 20 MILLIGRAM, QD
     Route: 042
     Dates: start: 20201101, end: 20201107

REACTIONS (1)
  - Hyperglycaemic hyperosmolar nonketotic syndrome [Fatal]

NARRATIVE: CASE EVENT DATE: 20201028
